FAERS Safety Report 8035872-5 (Version None)
Quarter: 2012Q1

REPORT INFORMATION
  Report Type: 
  Country: None (occurrence: None)
  Receive Date: 20120111
  Receipt Date: 20120111
  Transmission Date: 20120608
  Serious: Yes (Other)
  Sender: FDA-Public Use
  Company Number: None

PATIENT
  Age: 53 Year
  Sex: Female
  Weight: 77.11 kg

DRUGS (1)
  1. EXCEDRIN (MIGRAINE) [Suspect]
     Indication: HEADACHE
     Dosage: 500 MG
     Route: 048
     Dates: start: 20111106, end: 20111106

REACTIONS (4)
  - DIZZINESS [None]
  - PRODUCT QUALITY ISSUE [None]
  - ASTHENIA [None]
  - NERVOUSNESS [None]
